FAERS Safety Report 5432348-6 (Version None)
Quarter: 2007Q3

REPORT INFORMATION
  Report Type: 
  Country: None (occurrence: None)
  Receive Date: 20070831
  Receipt Date: 20070626
  Transmission Date: 20080115
  Serious: No
  Sender: FDA-Public Use
  Company Number: A0659790A

PATIENT
  Age: 57 Year
  Sex: Female

DRUGS (4)
  1. ALLI [Suspect]
     Route: 048
     Dates: start: 20070614, end: 20070618
  2. FISH OIL [Concomitant]
  3. FLAXSEED OIL [Concomitant]
  4. EVENING PRIMROSE OIL [Concomitant]

REACTIONS (1)
  - DRY EYE [None]
